FAERS Safety Report 5732641-3 (Version None)
Quarter: 2008Q2

REPORT INFORMATION
  Report Type: 
  Country: None (occurrence: None)
  Receive Date: 20080507
  Receipt Date: 20080425
  Transmission Date: 20081010
  Serious: Yes (Hospitalization, Other)
  Sender: FDA-Public Use
  Company Number: 233673J08USA

PATIENT
  Age: 48 Year
  Sex: Female
  Weight: 68.0396 kg

DRUGS (8)
  1. REBIF [Suspect]
     Indication: MULTIPLE SCLEROSIS
     Dosage: 44 MCG, 3 IN 1 WEEKS, SUBCUTANEOUS
     Route: 058
     Dates: start: 20040607
  2. PRILOSEC [Concomitant]
  3. WELCHOL [Concomitant]
  4. LEXAPRO [Concomitant]
  5. TRAZODONE HCL [Concomitant]
  6. OXYBUTYNIN CHLORIDE [Concomitant]
  7. LYRICA [Concomitant]
  8. STEROIDS (CORTICOSTEROIDS) [Concomitant]

REACTIONS (2)
  - CHOLELITHIASIS [None]
  - TYPE 2 DIABETES MELLITUS [None]
